FAERS Safety Report 10758781 (Version 1)
Quarter: 2015Q1

REPORT INFORMATION
  Report Type: Spontaneous
  Country: US (occurrence: US)
  Receive Date: 20150203
  Receipt Date: 20150203
  Transmission Date: 20150721
  Serious: No
  Sender: FDA-Public Use
  Company Number: US-PFIZER INC-2015034344

PATIENT
  Sex: Male

DRUGS (1)
  1. ADVIL [Suspect]
     Active Substance: IBUPROFEN
     Dosage: UNK

REACTIONS (5)
  - Insomnia [Unknown]
  - Palpitations [Unknown]
  - Atypical pneumonia [Unknown]
  - Restlessness [Unknown]
  - Nervousness [Unknown]

NARRATIVE: CASE EVENT DATE: 201501
